FAERS Safety Report 15760800 (Version 1)
Quarter: 2018Q4

REPORT INFORMATION
  Report Type: Spontaneous
  Country: US (occurrence: US)
  Receive Date: 20181218
  Receipt Date: 20181218
  Transmission Date: 20190205
  Serious: Yes (Hospitalization)
  Sender: FDA-Public Use
  Company Number: None

PATIENT

DRUGS (2)
  1. METOCLOPRAMIDE. [Suspect]
     Active Substance: METOCLOPRAMIDE
  2. AMIKACIN SULFATE. [Suspect]
     Active Substance: AMIKACIN SULFATE

REACTIONS (3)
  - Intercepted product selection error [None]
  - Product label confusion [None]
  - Wrong product stored [None]
